FAERS Safety Report 18251512 (Version 2)
Quarter: 2020Q4

REPORT INFORMATION
  Report Type: Report from Study
  Country: JP (occurrence: JP)
  Receive Date: 20200910
  Receipt Date: 20201029
  Transmission Date: 20210113
  Serious: Yes (Other)
  Sender: FDA-Public Use
  Company Number: JP-AMGEN-JPNCT2020145325

PATIENT
  Age: 7 Decade
  Sex: Female

DRUGS (50)
  1. SPIRONOLACTONE. [Concomitant]
     Active Substance: SPIRONOLACTONE
     Indication: CARDIAC FAILURE
     Dosage: UNK, UNK
  2. ONCOVIN [Concomitant]
     Active Substance: VINCRISTINE SULFATE
     Dosage: 2 MG
     Route: 065
     Dates: start: 20160427, end: 20160427
  3. ENDOXAN [Concomitant]
     Active Substance: CYCLOPHOSPHAMIDE
     Dosage: 1150 MG
     Route: 065
     Dates: start: 20160407, end: 20160407
  4. PREDONINE [Concomitant]
     Active Substance: PREDNISOLONE
     Dosage: 100 MG
     Route: 048
     Dates: start: 20160426, end: 20160430
  5. DOXORUBICIN HYDROCHLORIDE. [Suspect]
     Active Substance: DOXORUBICIN HYDROCHLORIDE
     Indication: LYMPHOMA
     Dosage: 77 MG
     Route: 065
     Dates: start: 20160203, end: 20160203
  6. G-LASTA [Concomitant]
     Active Substance: PEGFILGRASTIM
     Dosage: 3.6 MILLIGRAM
     Route: 058
     Dates: start: 20160227, end: 20160227
  7. G-LASTA [Concomitant]
     Active Substance: PEGFILGRASTIM
     Dosage: 3.6 MILLIGRAM
     Route: 058
     Dates: start: 20160319, end: 20160319
  8. ALOXI [Concomitant]
     Active Substance: PALONOSETRON HYDROCHLORIDE
     Dosage: 0.75 MG
     Route: 042
     Dates: start: 20160316, end: 20160316
  9. ENDOXAN [Concomitant]
     Active Substance: CYCLOPHOSPHAMIDE
     Indication: LYMPHOMA
     Dosage: 1160 MG
     Route: 065
     Dates: start: 20160203, end: 20160203
  10. BAKTAR [Concomitant]
     Active Substance: SULFAMETHOXAZOLE\TRIMETHOPRIM
     Indication: PRODUCT USED FOR UNKNOWN INDICATION
     Dosage: 1 DF
     Route: 048
     Dates: end: 20160517
  11. LASIX [Concomitant]
     Active Substance: FUROSEMIDE
     Indication: CARDIAC TAMPONADE
     Dosage: 20 MG
     Route: 048
     Dates: end: 20160209
  12. LASIX [Concomitant]
     Active Substance: FUROSEMIDE
     Indication: PERICARDIAL EFFUSION
     Dosage: UNK
  13. RITUXAN [Concomitant]
     Active Substance: RITUXIMAB
     Indication: LYMPHOMA
     Dosage: 580 MG
     Route: 065
     Dates: start: 20160202, end: 20160202
  14. RITUXAN [Concomitant]
     Active Substance: RITUXIMAB
     Dosage: 583 MG
     Route: 065
     Dates: start: 20160315, end: 20160315
  15. RITUXAN [Concomitant]
     Active Substance: RITUXIMAB
     Dosage: 580 MG
     Route: 065
     Dates: start: 20160426, end: 20160426
  16. ONCOVIN [Concomitant]
     Active Substance: VINCRISTINE SULFATE
     Dosage: 2 MG
     Route: 065
     Dates: start: 20160224, end: 20160224
  17. ONCOVIN [Concomitant]
     Active Substance: VINCRISTINE SULFATE
     Dosage: 2 MG
     Route: 065
     Dates: start: 20160316, end: 20160316
  18. ONCOVIN [Concomitant]
     Active Substance: VINCRISTINE SULFATE
     Dosage: 2 MG
     Route: 065
     Dates: start: 20160407, end: 20160407
  19. PREDONINE [Concomitant]
     Active Substance: PREDNISOLONE
     Indication: LYMPHOMA
     Dosage: 100 MG
     Route: 048
     Dates: start: 20160202, end: 20160206
  20. THYRADIN-S [Concomitant]
     Active Substance: LEVOTHYROXINE
     Indication: AUTOIMMUNE THYROIDITIS
     Dosage: 87.5 UG
     Route: 048
     Dates: end: 20160728
  21. LASIX [Concomitant]
     Active Substance: FUROSEMIDE
     Indication: CARDIAC FAILURE
     Dosage: UNK
  22. SPIRONOLACTONE. [Concomitant]
     Active Substance: SPIRONOLACTONE
     Indication: PERICARDIAL EFFUSION
     Dosage: UNK, UNK
  23. ALOXI [Concomitant]
     Active Substance: PALONOSETRON HYDROCHLORIDE
     Indication: LYMPHOMA
     Dosage: 0.75 MG
     Route: 042
     Dates: start: 20160203, end: 20160203
  24. ALOXI [Concomitant]
     Active Substance: PALONOSETRON HYDROCHLORIDE
     Dosage: 0.75 MG
     Route: 042
     Dates: start: 20160427, end: 20160427
  25. DERMOVATE [Concomitant]
     Active Substance: CLOBETASOL
     Indication: PRODUCT USED FOR UNKNOWN INDICATION
     Dosage: UNK, AS NEEDED
     Route: 061
     Dates: start: 20160204, end: 20160430
  26. DOXORUBICIN HYDROCHLORIDE. [Suspect]
     Active Substance: DOXORUBICIN HYDROCHLORIDE
     Dosage: 77 MG
     Route: 065
     Dates: start: 20160427, end: 20160427
  27. G-LASTA [Concomitant]
     Active Substance: PEGFILGRASTIM
     Dosage: 3.6 MG
     Route: 058
     Dates: start: 20160410, end: 20160410
  28. RITUXAN [Concomitant]
     Active Substance: RITUXIMAB
     Dosage: 588 MG
     Route: 065
     Dates: start: 20160223, end: 20160223
  29. LAXOBERON [Concomitant]
     Active Substance: SODIUM PICOSULFATE
     Indication: PRODUCT USED FOR UNKNOWN INDICATION
     Dosage: 5.0 MG
     Route: 048
     Dates: end: 20160227
  30. PREDONINE [Concomitant]
     Active Substance: PREDNISOLONE
     Dosage: 100 MG
     Route: 048
     Dates: start: 20160223, end: 20160227
  31. DOXORUBICIN HYDROCHLORIDE. [Suspect]
     Active Substance: DOXORUBICIN HYDROCHLORIDE
     Dosage: 78 MG
     Route: 065
     Dates: start: 20160224, end: 20160224
  32. THYRADIN-S [Concomitant]
     Active Substance: LEVOTHYROXINE
     Dosage: 75 UG
     Route: 048
     Dates: start: 20160729
  33. RINDERON [Concomitant]
     Indication: PRODUCT USED FOR UNKNOWN INDICATION
     Dosage: 4 MG
     Route: 065
     Dates: start: 20160203, end: 20160203
  34. ENDOXAN [Concomitant]
     Active Substance: CYCLOPHOSPHAMIDE
     Dosage: 1170 MG
     Route: 065
     Dates: start: 20160224, end: 20160224
  35. RABEPRAZOLE NA [Concomitant]
     Active Substance: RABEPRAZOLE SODIUM
     Indication: PRODUCT USED FOR UNKNOWN INDICATION
     Dosage: 10 MG
     Route: 048
     Dates: end: 20160517
  36. PREDONINE [Concomitant]
     Active Substance: PREDNISOLONE
     Dosage: 100 MG
     Route: 048
     Dates: start: 20160315, end: 20160319
  37. CINACALCET HCL [Suspect]
     Active Substance: CINACALCET HYDROCHLORIDE
     Indication: HYPERCALCAEMIA
     Dosage: 25 MILLIGRAM, QD
     Route: 048
     Dates: start: 20160202
  38. SPIRONOLACTONE. [Concomitant]
     Active Substance: SPIRONOLACTONE
     Indication: CARDIAC TAMPONADE
     Dosage: 25 MG
     Route: 048
     Dates: end: 20160209
  39. ALOXI [Concomitant]
     Active Substance: PALONOSETRON HYDROCHLORIDE
     Dosage: 0.75 MG
     Route: 042
     Dates: start: 20160407, end: 20160407
  40. ENDOXAN [Concomitant]
     Active Substance: CYCLOPHOSPHAMIDE
     Dosage: 1160 MG
     Route: 065
     Dates: start: 20160427, end: 20160427
  41. PREDONINE [Concomitant]
     Active Substance: PREDNISOLONE
     Dosage: 100 MG
     Route: 048
     Dates: start: 20160406, end: 20160410
  42. DOXORUBICIN HYDROCHLORIDE. [Suspect]
     Active Substance: DOXORUBICIN HYDROCHLORIDE
     Dosage: 77 MG
     Route: 065
     Dates: start: 20160316, end: 20160316
  43. DOXORUBICIN HYDROCHLORIDE. [Suspect]
     Active Substance: DOXORUBICIN HYDROCHLORIDE
     Dosage: 76 MG
     Route: 065
     Dates: start: 20160407, end: 20160407
  44. G-LASTA [Concomitant]
     Active Substance: PEGFILGRASTIM
     Indication: COLONY STIMULATING FACTOR THERAPY
     Dosage: 3.6 MILLIGRAM
     Route: 058
     Dates: start: 20160206, end: 20160206
  45. G-LASTA [Concomitant]
     Active Substance: PEGFILGRASTIM
     Dosage: 3.6 MG
     Route: 058
     Dates: start: 20160430, end: 20160430
  46. RITUXAN [Concomitant]
     Active Substance: RITUXIMAB
     Dosage: 570 MG
     Route: 065
     Dates: start: 20160406, end: 20160406
  47. ONCOVIN [Concomitant]
     Active Substance: VINCRISTINE SULFATE
     Indication: LYMPHOMA
     Dosage: 2 MG
     Route: 065
     Dates: start: 20160203, end: 20160203
  48. ALOXI [Concomitant]
     Active Substance: PALONOSETRON HYDROCHLORIDE
     Dosage: 0.75 MG
     Route: 042
     Dates: start: 20160224, end: 20160224
  49. ENDOXAN [Concomitant]
     Active Substance: CYCLOPHOSPHAMIDE
     Dosage: 1160 MG
     Route: 065
     Dates: start: 20160316, end: 20160316
  50. MAGNESIUM OXIDE. [Concomitant]
     Active Substance: MAGNESIUM OXIDE
     Indication: PRODUCT USED FOR UNKNOWN INDICATION
     Dosage: 990 MG
     Route: 048
     Dates: end: 20160517

REACTIONS (2)
  - Rhegmatogenous retinal detachment [Recovering/Resolving]
  - Infusion site erythema [Recovered/Resolved]

NARRATIVE: CASE EVENT DATE: 20160203
